FAERS Safety Report 5851691-X (Version None)
Quarter: 2008Q3

REPORT INFORMATION
  Report Type: 
  Country: None (occurrence: None)
  Receive Date: 20080820
  Receipt Date: 20080731
  Transmission Date: 20090109
  Serious: No
  Sender: FDA-Public Use
  Company Number: US-BOEHRINGER INGELHEIM GMBH, GERMANY-2008-BP-06983BP

PATIENT
  Sex: Female

DRUGS (7)
  1. MIRAPEX [Suspect]
     Indication: RESTLESS LEGS SYNDROME
  2. BUMETANIDE [Concomitant]
  3. QUINAPRIL [Concomitant]
  4. MELOXICAM [Concomitant]
  5. SINGULAIR [Concomitant]
  6. ALBUTEROL [Concomitant]
  7. LEVOTHYROXINE SODIUM [Concomitant]

REACTIONS (7)
  - BLADDER DISTENSION [None]
  - DRUG INEFFECTIVE [None]
  - FLATULENCE [None]
  - LIMB DISCOMFORT [None]
  - MOVEMENT DISORDER [None]
  - RESTLESS LEGS SYNDROME [None]
  - SLEEP DISORDER [None]
